FAERS Safety Report 6381673-3 (Version None)
Quarter: 2009Q3

REPORT INFORMATION
  Report Type: 
  Country: None (occurrence: None)
  Receive Date: 20090930
  Receipt Date: 20090916
  Transmission Date: 20100115
  Serious: Yes (Hospitalization, Other)
  Sender: FDA-Public Use
  Company Number: PHEH2007US11451

PATIENT
  Sex: Female
  Weight: 56.689 kg

DRUGS (3)
  1. AREDIA [Suspect]
  2. COUMADIN [Concomitant]
     Dosage: 7.5 MG, UNK
     Dates: start: 20040211
  3. PERCOCET [Concomitant]

REACTIONS (55)
  - ABDOMINAL PAIN [None]
  - ABDOMINAL PAIN UPPER [None]
  - ANHEDONIA [None]
  - ANTIPHOSPHOLIPID ANTIBODIES POSITIVE [None]
  - ANXIETY [None]
  - ARTHRALGIA [None]
  - BACK PAIN [None]
  - BACTERIAL DISEASE CARRIER [None]
  - BONE SCAN ABNORMAL [None]
  - BREAST PAIN [None]
  - CEREBRAL ARTERY STENOSIS [None]
  - CONSTIPATION [None]
  - DECREASED APPETITE [None]
  - DEEP VEIN THROMBOSIS [None]
  - DEPRESSION [None]
  - DISABILITY [None]
  - FACIAL PAIN [None]
  - FATIGUE [None]
  - FIBROMYALGIA [None]
  - FRACTURED SACRUM [None]
  - HEADACHE [None]
  - HERPES ZOSTER [None]
  - HYPOAESTHESIA [None]
  - INJURY [None]
  - INTERVERTEBRAL DISC PROTRUSION [None]
  - IRRITABLE BOWEL SYNDROME [None]
  - MASS [None]
  - MASS EXCISION [None]
  - MIGRAINE [None]
  - MUSCULAR WEAKNESS [None]
  - MUSCULOSKELETAL CHEST PAIN [None]
  - MUSCULOSKELETAL PAIN [None]
  - NAUSEA [None]
  - OSTEONECROSIS [None]
  - OSTEOPOROSIS [None]
  - PAIN [None]
  - PAIN IN EXTREMITY [None]
  - PELVIC PAIN [None]
  - PLANTAR FASCIITIS [None]
  - POLYP [None]
  - POSTMENOPAUSAL HAEMORRHAGE [None]
  - RESTLESS LEGS SYNDROME [None]
  - RHEUMATOID ARTHRITIS [None]
  - ROTATOR CUFF SYNDROME [None]
  - SINUSITIS [None]
  - SPINAL OSTEOARTHRITIS [None]
  - THROMBOPHLEBITIS [None]
  - TRANSIENT ISCHAEMIC ATTACK [None]
  - UTERINE CANCER [None]
  - VENOUS INSUFFICIENCY [None]
  - VERTIGO [None]
  - VISION BLURRED [None]
  - VOMITING [None]
  - WOUND DEHISCENCE [None]
  - WOUND INFECTION STAPHYLOCOCCAL [None]
